FAERS Safety Report 10398417 (Version 1)
Quarter: 2014Q3

REPORT INFORMATION
  Report Type: Spontaneous
  Country: US (occurrence: US)
  Receive Date: 20140821
  Receipt Date: 20140821
  Transmission Date: 20150326
  Serious: No
  Sender: FDA-Public Use
  Company Number: US-BAYER-2014-124871

PATIENT
  Age: 79 Year
  Sex: Female
  Weight: 54.42 kg

DRUGS (2)
  1. CORTISONE [CORTISONE ACETATE] [Concomitant]
  2. ALEVE [Suspect]
     Active Substance: NAPROXEN SODIUM
     Indication: ARTHRITIS
     Dosage: 1 DF, QD
     Route: 048
     Dates: start: 201407

REACTIONS (2)
  - Constipation [Not Recovered/Not Resolved]
  - Incorrect drug administration duration [None]

NARRATIVE: CASE EVENT DATE: 201407
